FAERS Safety Report 16222257 (Version 3)
Quarter: 2019Q4

REPORT INFORMATION
  Report Type: Report from Study
  Country: GB (occurrence: GB)
  Receive Date: 20190422
  Receipt Date: 20191219
  Transmission Date: 20200122
  Serious: Yes (Hospitalization, Other)
  Sender: FDA-Public Use
  Company Number: PHHY2019GB089768

PATIENT
  Age: 28 Year
  Sex: Male

DRUGS (5)
  1. ETORICOXIB. [Concomitant]
     Active Substance: ETORICOXIB
     Indication: PRODUCT USED FOR UNKNOWN INDICATION
     Dosage: 90 MG, QD
     Route: 048
  2. NEFOPAM [Concomitant]
     Active Substance: NEFOPAM
     Indication: PRODUCT USED FOR UNKNOWN INDICATION
     Dosage: 30-60 MG
     Route: 048
  3. OMEPRAZOLE. [Concomitant]
     Active Substance: OMEPRAZOLE
     Indication: PRODUCT USED FOR UNKNOWN INDICATION
     Dosage: 20 MG, QD
     Route: 048
  4. COSENTYX [Suspect]
     Active Substance: SECUKINUMAB
     Indication: PSORIATIC ARTHROPATHY
     Dosage: 150 MG, QMO (PRE-FILLED PEN)
     Route: 058
     Dates: start: 20181128
  5. COSENTYX [Suspect]
     Active Substance: SECUKINUMAB
     Indication: ANKYLOSING SPONDYLITIS
     Dosage: 150 MG, QMO (PRE-FILLED PEN)
     Route: 058
     Dates: start: 2018

REACTIONS (12)
  - Infection [Unknown]
  - Rash [Recovered/Resolved]
  - Taste disorder [Unknown]
  - Regurgitation [Unknown]
  - Groin abscess [Recovered/Resolved]
  - Pharyngitis [Unknown]
  - Abscess limb [Unknown]
  - Localised infection [Unknown]
  - Oral candidiasis [Recovered/Resolved]
  - Ill-defined disorder [Unknown]
  - Influenza [Unknown]
  - Candida infection [Recovered/Resolved]

NARRATIVE: CASE EVENT DATE: 201812
